FAERS Safety Report 4604136-1 (Version None)
Quarter: 2005Q1

REPORT INFORMATION
  Report Type: 
  Country: None (occurrence: None)
  Receive Date: 20050309
  Receipt Date: 20050309
  Transmission Date: 20050727
  Serious: Yes (Hospitalization)
  Sender: FDA-Public Use
  Company Number: None

PATIENT
  Age: 57 Year
  Sex: Female
  Weight: 56 kg

DRUGS (5)
  1. WARFARIN [Suspect]
     Indication: DEEP VEIN THROMBOSIS
     Dosage: 5 MG DAILY X 2.5 MG SUNDAY (CHRONIC)
  2. DEPAKOTE [Concomitant]
  3. SEROQUEL [Concomitant]
  4. NAMENDA [Concomitant]
  5. NEURONTIN [Concomitant]

REACTIONS (9)
  - ANAEMIA [None]
  - COAGULOPATHY [None]
  - DEHYDRATION [None]
  - EPISTAXIS [None]
  - HAEMATURIA [None]
  - HAEMORRHAGE [None]
  - HYPOTENSION [None]
  - MENTAL STATUS CHANGES [None]
  - SEPSIS [None]
